FAERS Safety Report 9680833 (Version 4)
Quarter: 2014Q2

REPORT INFORMATION
  Report Type: Spontaneous
  Country: CN (occurrence: CN)
  Receive Date: 20131111
  Receipt Date: 20140515
  Transmission Date: 20141212
  Serious: Yes (Hospitalization)
  Sender: FDA-Public Use
  Company Number: PHHY2013CN127302

PATIENT
  Age: 86 Year
  Sex: Female

DRUGS (2)
  1. ACLASTA [Suspect]
     Indication: HIP ARTHROPLASTY
     Dosage: UNK
     Route: 042
     Dates: start: 20131104, end: 20131104
  2. WARFARIN [Concomitant]
     Indication: HIP ARTHROPLASTY
     Dosage: UNK
     Route: 048

REACTIONS (5)
  - Upper gastrointestinal haemorrhage [Unknown]
  - Melaena [Unknown]
  - Cardiac disorder [Unknown]
  - Dyspnoea [Unknown]
  - Asthenia [Unknown]
